FAERS Safety Report 5411775-7 (Version None)
Quarter: 2007Q3

REPORT INFORMATION
  Report Type: 
  Country: None (occurrence: None)
  Receive Date: 20070813
  Receipt Date: 20070806
  Transmission Date: 20080115
  Serious: Yes (Hospitalization)
  Sender: FDA-Public Use
  Company Number: PHEH2007US10823

PATIENT
  Age: 52 Year
  Sex: Female

DRUGS (2)
  1. VIVELLE-DOT [Suspect]
     Indication: HORMONE REPLACEMENT THERAPY
     Dosage: UNK, TWICE WEEKLY
     Route: 062
  2. PROMETRIUM [Suspect]

REACTIONS (5)
  - BLOOD CHOLESTEROL ABNORMAL [None]
  - CEREBROVASCULAR ACCIDENT [None]
  - HYPERLIPIDAEMIA [None]
  - HYPOAESTHESIA [None]
  - OVERWEIGHT [None]
